FAERS Safety Report 4437903-8 (Version None)
Quarter: 2004Q3

REPORT INFORMATION
  Report Type: 
  Country: None (occurrence: None)
  Receive Date: 20040831
  Receipt Date: 20040824
  Transmission Date: 20050211
  Serious: Yes (Other)
  Sender: FDA-Public Use
  Company Number: BW-BRISTOL-MYERS SQUIBB COMPANY-12681987

PATIENT
  Age: 31 Year
  Sex: Female

DRUGS (3)
  1. EFAVIRENZ [Suspect]
     Indication: HIV INFECTION
     Dates: start: 20030819
  2. STAVUDINE [Suspect]
     Indication: HIV INFECTION
     Dates: start: 20030819
  3. LAMIVUDINE [Suspect]
     Indication: HIV INFECTION
     Dates: start: 20030819

REACTIONS (4)
  - GYNAECOMASTIA [None]
  - LIPOATROPHY [None]
  - LIPODYSTROPHY ACQUIRED [None]
  - MUSCLE ATROPHY [None]
